FAERS Safety Report 7801841-0 (Version None)
Quarter: 2011Q4

REPORT INFORMATION
  Report Type: 
  Country: None (occurrence: None)
  Receive Date: 20111007
  Receipt Date: 20110923
  Transmission Date: 20120403
  Serious: Yes (Other)
  Sender: FDA-Public Use
  Company Number: GB-MYLANLABS-2011S1020097

PATIENT
  Age: 20 Year
  Sex: Male

DRUGS (2)
  1. QUINIDINE HCL [Concomitant]
     Indication: PRODUCT USED FOR UNKNOWN INDICATION
  2. FLUOXETINE [Suspect]
     Indication: MYASTHENIC SYNDROME

REACTIONS (1)
  - RESPIRATORY DISORDER [None]
